FAERS Safety Report 8819291 (Version 2)
Quarter: 2013Q1

REPORT INFORMATION
  Report Type: Spontaneous
  Country: FR (occurrence: None)
  Receive Date: 20121003
  Receipt Date: 20130213
  Transmission Date: 20140127
  Serious: Yes (Other)
  Sender: FDA-Public Use
  Company Number: FR-1194317

PATIENT
  Age: 8 Year
  Sex: Male
  Weight: 23.7 kg

DRUGS (1)
  1. SKIACOL [Suspect]
     Dosage: 2 OR 4 DROPS IN EACH EYE OPHTHALMIC
     Route: 047

REACTIONS (4)
  - Urticaria [None]
  - Eye swelling [None]
  - Ocular hyperaemia [None]
  - Pyrexia [None]
